FAERS Safety Report 9454570 (Version 2)
Quarter: 2013Q3

REPORT INFORMATION
  Report Type: Spontaneous
  Country: JP (occurrence: JP)
  Receive Date: 20130812
  Receipt Date: 20130909
  Transmission Date: 20140515
  Serious: Yes (Life-Threatening, Other)
  Sender: FDA-Public Use
  Company Number: JP-GENZYME-THYM-1003967

PATIENT
  Age: 1 Year
  Sex: Female
  Weight: 7 kg

DRUGS (12)
  1. THYMOGLOBULINE [Suspect]
     Indication: LIVER TRANSPLANT REJECTION
     Dosage: 1.8 MG, QD
     Route: 065
  2. METHYLPREDNISOLONE [Suspect]
     Indication: IMMUNOSUPPRESSION
     Dosage: 20 MG/KG, UNK, FOR 3 DAYS
     Route: 065
  3. METHYLPREDNISOLONE [Suspect]
     Dosage: 10 MG/KG, UNK, FOR 2 DAYS
  4. METHYLPREDNISOLONE [Suspect]
     Dosage: UNK
     Route: 065
     Dates: start: 20120314
  5. TACROLIMUS [Suspect]
     Indication: IMMUNOSUPPRESSION
     Dosage: UNK
     Route: 065
     Dates: start: 20120314, end: 20120326
  6. MYCOPHENOLATE MOFETIL [Suspect]
     Indication: IMMUNOSUPPRESSION
     Dosage: UNK
     Route: 065
     Dates: start: 20120319
  7. METHYLPREDNISOLONE [Concomitant]
     Indication: PRODUCT USED FOR UNKNOWN INDICATION
     Dosage: UNK
     Route: 065
     Dates: start: 20120329, end: 20120331
  8. METHYLPREDNISOLONE [Concomitant]
     Dosage: UNK
     Route: 065
     Dates: start: 20120401, end: 20120402
  9. METHYLPREDNISOLONE [Concomitant]
     Dosage: 3 MG/KG, UNK
     Route: 065
     Dates: start: 20120403, end: 20120410
  10. TACROLIMUS [Concomitant]
     Indication: PRODUCT USED FOR UNKNOWN INDICATION
     Dosage: UNK
     Route: 065
     Dates: start: 20120326
  11. PARACETAMOL [Concomitant]
     Indication: PYREXIA
     Dosage: UNK
     Route: 065
     Dates: start: 20120403
  12. CHLORPHENAMINE [Concomitant]
     Indication: PRODUCT USED FOR UNKNOWN INDICATION
     Dosage: UNK
     Route: 065
     Dates: start: 20120403

REACTIONS (8)
  - Pancytopenia [Not Recovered/Not Resolved]
  - Staphylococcal sepsis [Recovered/Resolved]
  - Pneumonia bacterial [Not Recovered/Not Resolved]
  - Epstein-Barr virus infection [Recovered/Resolved]
  - Cytomegalovirus viraemia [Recovered/Resolved]
  - C-reactive protein increased [Recovered/Resolved]
  - Infusion site erythema [Recovered/Resolved]
  - Pyrexia [Recovered/Resolved]
